FAERS Safety Report 8880100 (Version 1)
Quarter: 2012Q4

REPORT INFORMATION
  Report Type: 
  Country: US (occurrence: US)
  Receive Date: 20121101
  Receipt Date: 20121101
  Transmission Date: 20130627
  Serious: No
  Sender: FDA-Public Use
  Company Number: US-TARO-2012P1024185

PATIENT
  Age: 63 Year
  Sex: Female

DRUGS (5)
  1. PHENYTOIN SODIUM EXTENDED CAPSULES USP 100MG [Suspect]
     Indication: CONVULSION
     Route: 048
     Dates: start: 201202, end: 20120513
  2. MOBIC [Concomitant]
  3. PREDNISONE [Concomitant]
  4. RIDAURA [Concomitant]
  5. OMEPRAZOLE [Concomitant]

REACTIONS (1)
  - Anticonvulsant drug level below therapeutic [Not Recovered/Not Resolved]
